FAERS Safety Report 9263869 (Version 7)
Quarter: 2013Q3

REPORT INFORMATION
  Report Type: Spontaneous
  Country: US (occurrence: US)
  Receive Date: 20130430
  Receipt Date: 20130726
  Transmission Date: 20140515
  Serious: No
  Sender: FDA-Public Use
  Company Number: US-PFIZER INC-2013131997

PATIENT
  Sex: Male

DRUGS (9)
  1. ZONEGRAN [Suspect]
     Dosage: 4 TABLETS A DAY THE NEXT WEEK
  2. ZONEGRAN [Suspect]
     Dosage: 5 TABLETS A DAY THE NEXT WEEK
  3. ZONEGRAN [Suspect]
     Dosage: 6 DF, UNK
  4. DILANTIN-125 [Suspect]
     Indication: CONVULSION
     Dosage: UNK
  5. DILANTIN-125 [Suspect]
     Dosage: 2 TABLES ON ONE DAY AND 2 TABLES THE NEXT 2 DAYS
  6. DILANTIN-125 [Suspect]
     Dosage: 2 TABLETS A DAY
  7. ZONEGRAN [Suspect]
     Dosage: 1 TABLET A DAY FOR THE FIRST WEEK
  8. ZONEGRAN [Suspect]
     Dosage: 2 TABLETS A DAY THE NEXT WEEK
  9. ZONEGRAN [Suspect]
     Dosage: 3 TABLES A DAY THE NEXT WEEK

REACTIONS (29)
  - Limb discomfort [Unknown]
  - Gait disturbance [Unknown]
  - Toxicity to various agents [Unknown]
  - Asthenia [Unknown]
  - Hypoaesthesia [Unknown]
  - Muscle strain [Unknown]
  - Pain in extremity [Unknown]
  - Spinal disorder [Unknown]
  - Nervous system disorder [Unknown]
  - Decreased appetite [Unknown]
  - Nervousness [Unknown]
  - Nausea [Unknown]
  - Agitation [Unknown]
  - Irritability [Unknown]
  - Depression [Unknown]
  - Depressed mood [Unknown]
  - Pain [Unknown]
  - Insomnia [Unknown]
  - Dysstasia [Unknown]
  - Gait disturbance [Unknown]
  - Fall [Unknown]
  - Muscular weakness [Unknown]
  - Skin disorder [Unknown]
  - Impaired driving ability [Unknown]
  - Muscle spasms [Unknown]
  - Arthropathy [Unknown]
  - Pain in extremity [Unknown]
  - Activities of daily living impaired [Unknown]
  - Myalgia [Unknown]
